FAERS Safety Report 21420304 (Version 2)
Quarter: 2023Q1

REPORT INFORMATION
  Report Type: Spontaneous
  Country: US (occurrence: US)
  Receive Date: 20221007
  Receipt Date: 20230104
  Transmission Date: 20230417
  Serious: No
  Sender: FDA-Public Use
  Company Number: US-BRISTOL-MYERS SQUIBB COMPANY-2022-113983

PATIENT
  Age: 77 Year
  Sex: Female

DRUGS (1)
  1. ZEPOSIA [Suspect]
     Active Substance: OZANIMOD HYDROCHLORIDE
     Indication: Product used for unknown indication
     Dosage: DOSE : 0.92 MG;     FREQ : UNAVAILABLE (NOT PROVIDED IN EMAIL)
     Route: 048

REACTIONS (2)
  - Adverse event [Unknown]
  - Fatigue [Unknown]

NARRATIVE: CASE EVENT DATE: 20220927
